FAERS Safety Report 19397128 (Version 1)
Quarter: 2021Q2

REPORT INFORMATION
  Report Type: Report from Study
  Country: US (occurrence: US)
  Receive Date: 20210610
  Receipt Date: 20210610
  Transmission Date: 20210717
  Serious: Yes (Hospitalization, Other)
  Sender: FDA-Public Use
  Company Number: US-BRISTOL-MYERS SQUIBB COMPANY-BMS-2021-055236

PATIENT
  Age: 41 Year
  Sex: Male
  Weight: 122.47 kg

DRUGS (2)
  1. NIVOLUMAB [Suspect]
     Active Substance: NIVOLUMAB
     Indication: MALIGNANT MELANOMA
     Dosage: 128 MILLIGRAM
     Route: 042
     Dates: start: 20210325
  2. IPILIMUMAB [Suspect]
     Active Substance: IPILIMUMAB
     Indication: MALIGNANT MELANOMA
     Dosage: 382.5 MILLIGRAM
     Route: 042
     Dates: start: 20210325

REACTIONS (2)
  - Colitis [Recovering/Resolving]
  - Hypokalaemia [Unknown]

NARRATIVE: CASE EVENT DATE: 20210514
